FAERS Safety Report 9206751 (Version 1)
Quarter: 2013Q1

REPORT INFORMATION
  Report Type: Spontaneous
  Country: US (occurrence: None)
  Receive Date: 20120731
  Receipt Date: 20120731
  Transmission Date: 20140127
  Serious: Yes (Hospitalization)
  Sender: FDA-Public Use
  Company Number: AMAG201203044

PATIENT
  Age: 73 Year
  Sex: Female
  Weight: 64.9 kg

DRUGS (12)
  1. ATIVAN (LOREZEPAM) [Concomitant]
  2. THEOPHYLLINE (FLUTICASONE PROPLONATE, SALMETEROL XINAFOATE) [Concomitant]
  3. ALBUTEROL (SALBUTAMOL SULFATE) [Concomitant]
  4. ZOLOFT (SERTRALINE HYDROCHLORIDE) [Concomitant]
  5. SINGULAIR [Concomitant]
  6. ADVAIR (FLUTICASONE PROPIONATE, SALMETEROL XINAFOATE) [Concomitant]
  7. FERAHEME (FERUMOXYTOL) INJECTION, 510MG [Suspect]
     Indication: IRON DEFICIENCY ANAEMIA
     Route: 042
     Dates: start: 20120601, end: 20120601
  8. VITAMIN D (COLECALCIFEROL) [Concomitant]
  9. SPIRIVA HANDIHALER (TIOTROPIUM BROMIDE) [Concomitant]
  10. DIOVAN (VALSARTAN) [Concomitant]
  11. NEURONTIN (GABAPENTIN) [Concomitant]
  12. PREDNISOLONE (PREDNISOLONE ACETATE) [Concomitant]

REACTIONS (10)
  - Hypersensitivity [None]
  - Hypotension [None]
  - Feeling abnormal [None]
  - Hyperhidrosis [None]
  - Burning sensation [None]
  - Erythema [None]
  - Pruritus [None]
  - Nausea [None]
  - Vomiting [None]
  - Diarrhoea [None]
